FAERS Safety Report 8794065 (Version 2)
Quarter: 2013Q1

REPORT INFORMATION
  Report Type: Spontaneous
  Country: BR (occurrence: BR)
  Receive Date: 20120917
  Receipt Date: 20130114
  Transmission Date: 20140127
  Serious: Yes (Death, Hospitalization)
  Sender: FDA-Public Use
  Company Number: PHHY2012BR080081

PATIENT
  Sex: Male
  Weight: 70 kg

DRUGS (6)
  1. EXELON PATCH [Suspect]
     Indication: DEMENTIA ALZHEIMER^S TYPE
     Dosage: UNK UKN, UNK
  2. EXELON PATCH [Suspect]
     Dosage: 13.3 MG, QD
     Route: 062
     Dates: start: 2008
  3. EXELON PATCH [Suspect]
     Dosage: 13.3 MG, QD
     Route: 062
  4. QUETIAPINE FUMARATE [Concomitant]
     Dosage: 2 DF, QD
     Route: 048
  5. FINASTERIDE [Concomitant]
     Indication: PROSTATIC DISORDER
     Dosage: 1 DF, QD
     Route: 048
  6. CLONOTRIL [Concomitant]
     Indication: SLEEP DISORDER
     Dosage: 1 DF, QD
     Route: 048
     Dates: start: 2007

REACTIONS (3)
  - Pneumonia [Fatal]
  - Wheezing [Fatal]
  - Nasopharyngitis [Unknown]
